FAERS Safety Report 19725011 (Version 1)
Quarter: 2021Q3

REPORT INFORMATION
  Report Type: Spontaneous
  Country: US (occurrence: US)
  Receive Date: 20210819
  Receipt Date: 20210819
  Transmission Date: 20211014
  Serious: No
  Sender: FDA-Public Use
  Company Number: None

PATIENT
  Age: 44 Year
  Sex: Female

DRUGS (1)
  1. CLINOLIPID [Suspect]
     Active Substance: OLIVE OIL\SOYBEAN OIL
     Indication: MALNUTRITION
     Dosage: ?          OTHER STRENGTH:20%;OTHER DOSE:155CC;?
     Route: 040
     Dates: start: 20210721, end: 20210721

REACTIONS (5)
  - Throat tightness [None]
  - Throat irritation [None]
  - Infusion related reaction [None]
  - Cough [None]
  - Urticaria [None]

NARRATIVE: CASE EVENT DATE: 20210721
